FAERS Safety Report 16998748 (Version 2)
Quarter: 2019Q4

REPORT INFORMATION
  Report Type: Spontaneous
  Country: JP (occurrence: JP)
  Receive Date: 20191106
  Receipt Date: 20191126
  Transmission Date: 20200122
  Serious: Yes (Hospitalization)
  Sender: FDA-Public Use
  Company Number: JP-ROCHE-2285743

PATIENT
  Age: 45 Year
  Sex: Female
  Weight: 46 kg

DRUGS (16)
  1. ACTEMRA [Suspect]
     Active Substance: TOCILIZUMAB
     Dosage: DOSAGE IS UNCERTAIN.
     Route: 041
     Dates: start: 20190222
  2. VICCLOX [Concomitant]
     Active Substance: ACYCLOVIR SODIUM
     Dosage: DOSAGE IS UNCERTAIN.
     Route: 048
     Dates: start: 20181226
  3. BROTIZOLAM [Concomitant]
     Active Substance: BROTIZOLAM
     Dosage: DOSAGE IS UNCERTAIN.
     Route: 048
  4. PARIET [Concomitant]
     Active Substance: RABEPRAZOLE SODIUM
     Dosage: DOSAGE IS UNCERTAIN.
     Route: 048
     Dates: start: 20181226
  5. BENZALIN [NITRAZEPAM] [Concomitant]
     Active Substance: NITRAZEPAM
     Dosage: DOSAGE IS UNCERTAIN.
     Route: 048
     Dates: start: 20181226
  6. SODIUM PICOSULFATE [Concomitant]
     Active Substance: SODIUM PICOSULFATE
     Dosage: DOSAGE IS UNCERTAIN.
     Route: 048
     Dates: start: 20190219
  7. DAIPHEN [Concomitant]
     Active Substance: SULFAMETHOXAZOLE\TRIMETHOPRIM
     Dosage: DOSAGE IS UNCERTAIN.
     Route: 048
     Dates: start: 20181226
  8. ACTEMRA [Suspect]
     Active Substance: TOCILIZUMAB
     Indication: CYTOKINE RELEASE SYNDROME
     Dosage: DOSAGE IS UNCERTAIN.
     Route: 041
     Dates: start: 20190220
  9. REFLEX [Concomitant]
     Active Substance: MIRTAZAPINE
     Dosage: DOSAGE IS UNCERTAIN.
     Route: 048
  10. MAGNESIUM OXIDE. [Concomitant]
     Active Substance: MAGNESIUM OXIDE
     Dosage: DOSAGE IS UNCERTAIN.
     Route: 048
  11. ZYPREXA [Concomitant]
     Active Substance: OLANZAPINE
     Dosage: DOSAGE IS UNCERTAIN.
     Route: 048
     Dates: start: 20181226
  12. HIRUDOID [Concomitant]
     Active Substance: GLYCOSAMINOGLYCANS
     Dosage: DOSAGE IS UNCERTAIN.
     Route: 003
     Dates: start: 20190115
  13. PANTETHINE [Concomitant]
     Active Substance: PANTETHINE
     Dosage: DOSAGE IS UNCERTAIN.
     Route: 048
     Dates: start: 20190219
  14. ACETAMINOPHEN. [Concomitant]
     Active Substance: ACETAMINOPHEN
  15. CALONAL [Concomitant]
     Active Substance: ACETAMINOPHEN
     Dosage: DOSAGE IS UNCERTAIN.
     Route: 048
     Dates: start: 20181226, end: 20190226
  16. CEFEPIME DIHYDROCHLORIDE [Concomitant]
     Active Substance: CEFEPIME HYDROCHLORIDE
     Dosage: DOSAGE IS UNCERTAIN.
     Route: 065
     Dates: start: 20190220, end: 20190227

REACTIONS (14)
  - Vomiting [Recovered/Resolved]
  - Submaxillary gland enlargement [Recovered/Resolved]
  - White blood cell count decreased [Recovered/Resolved]
  - Malaise [Recovered/Resolved]
  - Stomatitis [Recovered/Resolved]
  - Upper respiratory tract infection [Recovered/Resolved]
  - Intentional product use issue [Unknown]
  - Neutrophil count decreased [Not Recovered/Not Resolved]
  - Off label use [Unknown]
  - Lymphocyte count decreased [Recovered/Resolved]
  - Oedema peripheral [Recovered/Resolved]
  - Pyrexia [Recovered/Resolved]
  - Platelet count decreased [Not Recovered/Not Resolved]
  - Anaemia [Recovered/Resolved]

NARRATIVE: CASE EVENT DATE: 20190220
